FAERS Safety Report 7722152-8 (Version None)
Quarter: 2011Q3

REPORT INFORMATION
  Report Type: 
  Country: None (occurrence: None)
  Receive Date: 20110831
  Receipt Date: 20110823
  Transmission Date: 20111222
  Serious: Yes (Disabling)
  Sender: FDA-Public Use
  Company Number: FR-BAXTER-2010BH022469

PATIENT
  Age: 71 Year
  Sex: Female

DRUGS (9)
  1. SOLU-MEDROL [Concomitant]
     Indication: PREMEDICATION
     Route: 065
  2. GAMMAGARD LIQUID [Suspect]
     Indication: INCLUSION BODY MYOSITIS
     Route: 065
     Dates: start: 20100118, end: 20100122
  3. POLARAMINE [Concomitant]
     Indication: PREMEDICATION
     Route: 065
  4. ATARAX [Concomitant]
     Indication: PREMEDICATION
     Route: 065
  5. OMEPRAZOLE [Concomitant]
     Indication: PRODUCT USED FOR UNKNOWN INDICATION
     Route: 065
  6. ACETAMINOPHEN [Concomitant]
     Indication: PRODUCT USED FOR UNKNOWN INDICATION
     Route: 065
  7. LODINE [Concomitant]
     Indication: PRODUCT USED FOR UNKNOWN INDICATION
     Route: 065
  8. GAMMAGARD LIQUID [Suspect]
     Indication: OFF LABEL USE
     Route: 065
     Dates: start: 20100118, end: 20100122
  9. LEVOTHYROXINE SODIUM [Concomitant]
     Indication: HYPOTHYROIDISM
     Route: 065

REACTIONS (1)
  - DERMATITIS BULLOUS [None]
